FAERS Safety Report 5494465-4 (Version None)
Quarter: 2007Q4

REPORT INFORMATION
  Report Type: 
  Country: None (occurrence: None)
  Receive Date: 20071022
  Receipt Date: 20071010
  Transmission Date: 20080405
  Serious: Yes (Other)
  Sender: FDA-Public Use
  Company Number: CHNY2007JP01193

PATIENT
  Age: 58 Year
  Sex: Male
  Weight: 57 kg

DRUGS (3)
  1. NICOTINE [Suspect]
     Indication: NICOTINE DEPENDENCE
     Dosage: 21 MG; 14 MG; 7 MG QD, TRANSDERMAL
     Route: 062
     Dates: start: 20070110, end: 20070208
  2. NICOTINE [Suspect]
     Indication: NICOTINE DEPENDENCE
     Dosage: 21 MG; 14 MG; 7 MG QD, TRANSDERMAL
     Route: 062
     Dates: start: 20070209, end: 20070223
  3. NICOTINE [Suspect]
     Indication: NICOTINE DEPENDENCE
     Dosage: 21 MG; 14 MG; 7 MG QD, TRANSDERMAL
     Route: 062
     Dates: start: 20070224, end: 20070301

REACTIONS (4)
  - APPLICATION SITE DERMATITIS [None]
  - GYNAECOMASTIA [None]
  - NIPPLE DISORDER [None]
  - NIPPLE SWELLING [None]
